FAERS Safety Report 14655407 (Version 4)
Quarter: 2018Q2

REPORT INFORMATION
  Report Type: Report from Study
  Country: GB (occurrence: GB)
  Receive Date: 20180319
  Receipt Date: 20180514
  Transmission Date: 20180711
  Serious: No
  Sender: FDA-Public Use
  Company Number: GB-AMGEN-GBRCT2018033773

PATIENT
  Age: 64 Year
  Sex: Male
  Weight: 93.2 kg

DRUGS (11)
  1. BLINATUMOMAB [Suspect]
     Active Substance: BLINATUMOMAB
     Indication: B-CELL LYMPHOMA
     Dosage: 112 MUG, QD
     Route: 042
     Dates: start: 20171212, end: 20171226
  2. DEXAMETHASONE. [Concomitant]
     Active Substance: DEXAMETHASONE
     Dosage: 4-20 MG, UNK
     Dates: start: 20171212
  3. CLARITHROMYCIN. [Concomitant]
     Active Substance: CLARITHROMYCIN
     Dosage: 250 MG, UNK
     Route: 048
     Dates: start: 20180105, end: 20180109
  4. PARACETAMOL [Concomitant]
     Active Substance: ACETAMINOPHEN
     Dosage: UNK
     Dates: start: 20171229
  5. CO-AMOXICLAV [Concomitant]
     Active Substance: AMOXICILLIN\CLAVULANIC ACID
     Dosage: 625 MG, UNK
     Route: 048
     Dates: start: 20180105, end: 20180109
  6. AUGMENTIN [Concomitant]
     Active Substance: AMOXICILLIN\CLAVULANATE POTASSIUM
     Dosage: 625 MG, UNK
     Route: 048
     Dates: start: 20180116, end: 20180123
  7. GABAPENTIN. [Concomitant]
     Active Substance: GABAPENTIN
     Dosage: 200-300 MG, UNK
     Route: 048
     Dates: start: 20171212
  8. ACICLOVIR [Concomitant]
     Active Substance: ACYCLOVIR
     Dosage: 400 MG, UNK
     Route: 048
     Dates: start: 20171213
  9. COTRIMOXAZOLE [Concomitant]
     Active Substance: SULFAMETHOXAZOLE\TRIMETHOPRIM
     Dosage: 480 MG, UNK
     Route: 048
     Dates: start: 20171212
  10. LAXIDO [Concomitant]
     Active Substance: POLYETHYLENE GLYCOL 3350\POTASSIUM CHLORIDE\SODIUM BICARBONATE\SODIUM CHLORIDE
     Dosage: 1 UNK, UNK
     Route: 048
     Dates: start: 20171213
  11. SENNA [Concomitant]
     Active Substance: SENNA LEAF\SENNOSIDES\SENNOSIDES A AND B
     Dosage: UNK
     Dates: start: 20171213

REACTIONS (1)
  - Transplant evaluation [Recovered/Resolved]

NARRATIVE: CASE EVENT DATE: 20180226
